FAERS Safety Report 22932259 (Version 2)
Quarter: 2024Q1

REPORT INFORMATION
  Report Type: Spontaneous
  Country: US (occurrence: US)
  Receive Date: 20230912
  Receipt Date: 20240129
  Transmission Date: 20240410
  Serious: No
  Sender: FDA-Public Use
  Company Number: US-JNJFOC-20230910010

PATIENT
  Age: 60 Year
  Sex: Male

DRUGS (2)
  1. XARELTO [Suspect]
     Active Substance: RIVAROXABAN
     Indication: Cerebrovascular accident prophylaxis
     Dosage: TAKEN ALL OF WEEK 4, AND ALL OF WEEK 5
     Route: 048
     Dates: start: 20230904
  2. XARELTO [Suspect]
     Active Substance: RIVAROXABAN
     Indication: Thrombosis

REACTIONS (4)
  - Product label issue [Unknown]
  - Product physical issue [Unknown]
  - Treatment noncompliance [Unknown]
  - Hunger [Unknown]

NARRATIVE: CASE EVENT DATE: 20230901
